FAERS Safety Report 13669240 (Version 2)
Quarter: 2017Q3

REPORT INFORMATION
  Report Type: Report from Study
  Country: US (occurrence: US)
  Receive Date: 20170620
  Receipt Date: 20170727
  Transmission Date: 20171127
  Serious: Yes (Hospitalization)
  Sender: FDA-Public Use
  Company Number: US-PFIZER INC-2016187556

PATIENT
  Age: 60 Year
  Sex: Male
  Weight: 98.4 kg

DRUGS (18)
  1. ERGOCALCIFEROL. [Concomitant]
     Active Substance: ERGOCALCIFEROL
     Indication: VITAMIN D DEFICIENCY
     Dosage: UNK
     Route: 048
     Dates: start: 2012
  2. ACETAMINOPHEN. [Concomitant]
     Active Substance: ACETAMINOPHEN
     Indication: HEADACHE
     Dosage: UNK
     Route: 048
     Dates: start: 1994
  3. AXITINIB [Suspect]
     Active Substance: AXITINIB
     Dosage: 7 MG, TWICE DAILY, 28 DAY CYCLES
     Route: 048
     Dates: start: 20160308, end: 20160325
  4. GEMFIBROZIL. [Concomitant]
     Active Substance: GEMFIBROZIL
     Indication: HYPERTRIGLYCERIDAEMIA
     Dosage: UNK
     Route: 048
     Dates: start: 20141124
  5. AMLODIPINE [Concomitant]
     Active Substance: AMLODIPINE BESYLATE
     Indication: HYPERTENSION
     Dosage: UNK
     Route: 048
     Dates: start: 20150826
  6. ATROPINE DIPHENOXYLATE [Concomitant]
     Dosage: UNK
     Dates: start: 20151216
  7. AXITINIB [Suspect]
     Active Substance: AXITINIB
     Dosage: 7 MG, TWICE DAILY, 28 DAY CYCLES
     Route: 048
     Dates: start: 20150630, end: 20151019
  8. LEVOTHYROXINE. [Concomitant]
     Active Substance: LEVOTHYROXINE
     Indication: HYPOTHYROIDISM
     Dosage: UNK
     Route: 048
     Dates: start: 20120125
  9. GABAPENTIN. [Concomitant]
     Active Substance: GABAPENTIN
     Indication: NECK PAIN
     Dosage: UNK
     Route: 048
     Dates: start: 20160206, end: 20160325
  10. METOPROLOL SUCCINATE. [Concomitant]
     Active Substance: METOPROLOL SUCCINATE
     Indication: SUPRAVENTRICULAR TACHYCARDIA
     Dosage: UNK
     Route: 048
     Dates: start: 2009, end: 20160326
  11. FLORINEF ACETATE [Concomitant]
     Active Substance: FLUDROCORTISONE ACETATE
     Indication: ADRENAL INSUFFICIENCY
     Dosage: UNK
     Route: 048
     Dates: start: 2009
  12. LORATADINE. [Concomitant]
     Active Substance: LORATADINE
     Indication: SEASONAL ALLERGY
     Dosage: UNK
     Route: 048
     Dates: start: 2011
  13. AXITINIB [Suspect]
     Active Substance: AXITINIB
     Dosage: 7 MG, TWICE DAILY, 28 DAY CYCLES
     Route: 048
     Dates: start: 20150630, end: 20151019
  14. AXITINIB [Suspect]
     Active Substance: AXITINIB
     Dosage: 7 MG, TWICE DAILY, 28 DAY CYCLES
     Route: 048
     Dates: start: 20160308, end: 20160325
  15. METHYLPREDNISOLONE. [Concomitant]
     Active Substance: METHYLPREDNISOLONE
     Indication: NECK PAIN
     Dosage: UNK
     Route: 048
     Dates: start: 20160206
  16. AXITINIB [Suspect]
     Active Substance: AXITINIB
     Indication: METASTATIC RENAL CELL CARCINOMA
     Dosage: 5 MG, TWICE DAILY, 28 DAY CYCLES
     Route: 048
     Dates: start: 20150602, end: 20150629
  17. AXITINIB [Suspect]
     Active Substance: AXITINIB
     Dosage: 5 MG, TWICE DAILY, 28 DAY CYCLES
     Route: 048
     Dates: start: 20151020, end: 20160307
  18. HYDROCORTISONE. [Concomitant]
     Active Substance: HYDROCORTISONE
     Indication: ADRENAL INSUFFICIENCY
     Dosage: UNK
     Route: 048
     Dates: start: 2009

REACTIONS (1)
  - Enterocolitis [Recovered/Resolved]

NARRATIVE: CASE EVENT DATE: 20160326
